FAERS Safety Report 9777518 (Version 1)
Quarter: 2013Q4

REPORT INFORMATION
  Report Type: Report from Study
  Country: BR (occurrence: BR)
  Receive Date: 20131222
  Receipt Date: 20131222
  Transmission Date: 20140711
  Serious: Yes (Hospitalization)
  Sender: FDA-Public Use
  Company Number: PHHY2013BR149905

PATIENT
  Age: 81 Year
  Sex: Female
  Weight: 65 kg

DRUGS (6)
  1. ACLASTA [Suspect]
     Dosage: UNK UKN, UNK
     Route: 042
     Dates: start: 20121005
  2. ACLASTA [Suspect]
     Dosage: UNK UKN, UNK
     Route: 042
     Dates: start: 20131123
  3. PANTOPRAZOLE [Concomitant]
     Dosage: 40 MG, QD
  4. LIPLESS [Concomitant]
     Dosage: 100 MG, QD
  5. DIOSMIN W/HESPERIDIN [Concomitant]
     Dosage: 1 DF, QD (450/50)
  6. CEBRALAT [Concomitant]
     Dosage: 50 MG, QD

REACTIONS (2)
  - Fall [Recovered/Resolved]
  - Femur fracture [Recovered/Resolved]
